FAERS Safety Report 17699636 (Version 2)
Quarter: 2020Q2

REPORT INFORMATION
  Report Type: Spontaneous
  Country: US (occurrence: US)
  Receive Date: 20200423
  Receipt Date: 20200520
  Transmission Date: 20200714
  Serious: Yes (Other)
  Sender: FDA-Public Use
  Company Number: US-PFIZER INC-2020157400

PATIENT
  Age: 70 Year
  Sex: Female
  Weight: 40.5 kg

DRUGS (40)
  1. LINEZOLID. [Suspect]
     Active Substance: LINEZOLID
     Dosage: 300 MG, UNK(FIVE TIMES WEEKLY)
     Dates: start: 20200319
  2. CLOFAZIMINE [Suspect]
     Active Substance: CLOFAZIMINE
     Indication: TUBERCULOSIS
     Dosage: 100 MG, 1X/DAY[QD (ONCE A DAY)]
     Route: 048
     Dates: start: 20180128, end: 20190213
  3. BEDAQUILINE [Suspect]
     Active Substance: BEDAQUILINE
     Dosage: 400 MG, DAILY
     Dates: start: 20181113, end: 20181127
  4. BEDAQUILINE [Suspect]
     Active Substance: BEDAQUILINE
     Dosage: 200 UNK, UNK(TIW (THREE TIMES A WEEK))
     Route: 048
     Dates: start: 20181128, end: 20190424
  5. TUMS [CALCIUM CARBONATE;MAGNESIUM CARBONATE;MAGNESIUM TRISILICATE] [Concomitant]
     Active Substance: CALCIUM CARBONATE\MAGNESIUM CARBONATE\MAGNESIUM TRISILICATE
     Indication: DYSPEPSIA
  6. CHLORAL HYDRATE [Suspect]
     Active Substance: CHLORAL HYDRATE
  7. LINEZOLID. [Suspect]
     Active Substance: LINEZOLID
     Dosage: 450 MG, 1X/DAY
     Route: 048
     Dates: start: 20181123, end: 20190123
  8. LINEZOLID. [Suspect]
     Active Substance: LINEZOLID
     Dosage: 300 MG, 1X/DAY
     Route: 048
     Dates: start: 20190124, end: 20190424
  9. AMOXICILLIN AND CLAVULANATE POTASSIUM [Concomitant]
     Active Substance: AMOXICILLIN\CLAVULANATE POTASSIUM
     Dosage: UNK
     Dates: start: 20181113, end: 20190424
  10. ISOSORBIDE DINITRATE. [Concomitant]
     Active Substance: ISOSORBIDE DINITRATE
     Indication: CORONARY ARTERY DISEASE
  11. CLOFAZIMINE [Suspect]
     Active Substance: CLOFAZIMINE
     Dosage: 100 MG, UNK(THRICE WEEKLY)
     Route: 048
     Dates: start: 20190318, end: 20190410
  12. DELAMANID [Suspect]
     Active Substance: DELAMANID
     Indication: TUBERCULOSIS
     Dosage: 100 MG, 2X/DAY
     Route: 048
     Dates: start: 20181129, end: 20190424
  13. AMOXICILLIN AND CLAVULANATE POTASSIUM [Concomitant]
     Active Substance: AMOXICILLIN\CLAVULANATE POTASSIUM
     Dosage: UNK
     Dates: start: 20190427, end: 20190514
  14. LINEZOLID. [Suspect]
     Active Substance: LINEZOLID
     Dosage: 300 MG, 1X/DAY
     Route: 048
     Dates: start: 20190427, end: 20191202
  15. LINEZOLID. [Suspect]
     Active Substance: LINEZOLID
     Dosage: 300 MG, UNK[TIW(THREE TIMES A WEEK)]
     Route: 048
     Dates: start: 20191204, end: 20200318
  16. CLOFAZIMINE [Suspect]
     Active Substance: CLOFAZIMINE
     Dosage: 100 MG, 1X/DAY[QD (ONCE A DAY)]
     Route: 048
     Dates: start: 20190220, end: 20190227
  17. CLOFAZIMINE [Suspect]
     Active Substance: CLOFAZIMINE
     Dosage: 100 MG, UNK( FOUR TIMES WEEKLY)
     Route: 048
     Dates: start: 20190411, end: 20190424
  18. CLOFAZIMINE [Suspect]
     Active Substance: CLOFAZIMINE
     Dosage: 100 MG, UNK(FIVE TIMES WEEKLY)
     Dates: start: 20200319, end: 20200325
  19. DELAMANID [Suspect]
     Active Substance: DELAMANID
     Dosage: 100 MG, 2X/DAY
     Route: 048
     Dates: start: 20190427, end: 20200318
  20. METOCLOPRAMIDE. [Concomitant]
     Active Substance: METOCLOPRAMIDE
     Dosage: UNK
     Dates: start: 20190212, end: 20190304
  21. LINEZOLID. [Suspect]
     Active Substance: LINEZOLID
     Indication: TUBERCULOSIS
     Dosage: 400 MG, 1X/DAY
     Route: 048
     Dates: start: 20181113, end: 20181122
  22. LORAZEPAM. [Suspect]
     Active Substance: LORAZEPAM
     Indication: VOMITING
     Dosage: 0.5 MG, 3X/DAY
     Route: 048
     Dates: start: 20200327
  23. ISOSORBIDE DINITRATE. [Concomitant]
     Active Substance: ISOSORBIDE DINITRATE
     Indication: ANGINA PECTORIS
     Dosage: UNK
  24. METOCLOPRAMIDE. [Concomitant]
     Active Substance: METOCLOPRAMIDE
     Dosage: UNK
     Dates: start: 20190305
  25. PANTOPRAZOLE [Suspect]
     Active Substance: PANTOPRAZOLE
     Dosage: 40 MG, 1X/DAY
     Route: 048
  26. LINEZOLID. [Suspect]
     Active Substance: LINEZOLID
     Dosage: 300 MG, UNK(THRICE WEEKLY)
     Dates: start: 20190412
  27. LORAZEPAM. [Suspect]
     Active Substance: LORAZEPAM
     Indication: NAUSEA
     Dosage: 0.5 MG, 2X/DAY[BID(TWO TIMES A DAY)]
     Dates: start: 20190305, end: 20200326
  28. CLOFAZIMINE [Suspect]
     Active Substance: CLOFAZIMINE
     Dosage: 100 MG, UNK(4 TIMES A WEEK)
     Route: 048
     Dates: start: 20190427, end: 20200318
  29. CLOFAZIMINE [Suspect]
     Active Substance: CLOFAZIMINE
     Dosage: 100 MG, UNK(FOUR TIMES WEEKLY)
     Dates: start: 20200326
  30. BEDAQUILINE [Suspect]
     Active Substance: BEDAQUILINE
     Indication: TUBERCULOSIS
     Dosage: 400 MG, 1X/DAY
     Route: 048
     Dates: start: 20181113, end: 20181127
  31. PHENERGAN [Suspect]
     Active Substance: PROMETHAZINE HYDROCHLORIDE
     Dosage: UNK
     Route: 030
     Dates: start: 20200226, end: 20200227
  32. POTASSIUM CHLORIDE. [Concomitant]
     Active Substance: POTASSIUM CHLORIDE
     Indication: BLOOD PHOSPHORUS DECREASED
     Dosage: UNK
     Dates: start: 20190225
  33. BONIVA [Concomitant]
     Active Substance: IBANDRONATE SODIUM
     Indication: OSTEOPOROSIS
     Dosage: UNK
     Dates: start: 20190408
  34. ERTAPENEM. [Concomitant]
     Active Substance: ERTAPENEM SODIUM
     Dosage: UNK
     Dates: start: 20190427, end: 20190514
  35. ZOLPIDEM [Concomitant]
     Active Substance: ZOLPIDEM TARTRATE
     Indication: INSOMNIA
     Dosage: UNK
  36. TUMS [CALCIUM CARBONATE;MAGNESIUM CARBONATE;MAGNESIUM TRISILICATE] [Concomitant]
     Active Substance: CALCIUM CARBONATE\MAGNESIUM CARBONATE\MAGNESIUM TRISILICATE
     Indication: NAUSEA
     Dosage: UNK
     Dates: start: 20190214
  37. PANTOPRAZOLE [Suspect]
     Active Substance: PANTOPRAZOLE
     Indication: DYSPEPSIA
     Dosage: 40 MG, DAILY
     Route: 048
  38. BEDAQUILINE [Suspect]
     Active Substance: BEDAQUILINE
     Dosage: 200 MG, UNK[TIW (THREE TIMES A WEEK)]
     Route: 048
     Dates: start: 20190427, end: 20191202
  39. DELAMANID [Suspect]
     Active Substance: DELAMANID
     Dosage: 100 MG, 2X/DAY
     Dates: start: 20190326
  40. ERTAPENEM. [Concomitant]
     Active Substance: ERTAPENEM SODIUM
     Indication: TUBERCULOSIS
     Dosage: UNK
     Dates: start: 20181113, end: 20190424

REACTIONS (3)
  - Electrocardiogram QT prolonged [Recovered/Resolved]
  - Blood calcium decreased [Unknown]
  - Blood alkaline phosphatase increased [Unknown]
